FAERS Safety Report 7894138-4 (Version None)
Quarter: 2011Q4

REPORT INFORMATION
  Report Type: 
  Country: None (occurrence: None)
  Receive Date: 20111104
  Receipt Date: 20111031
  Transmission Date: 20120403
  Serious: Yes (Other)
  Sender: FDA-Public Use
  Company Number: CHPA2011DE15339

PATIENT
  Age: 76 Year
  Sex: Female

DRUGS (1)
  1. SCOPOLAMINE [Suspect]
     Indication: SALIVARY HYPERSECRETION
     Dosage: UNK, FOR SEVERAL WEEKS
     Route: 062
     Dates: start: 20110101, end: 20110101

REACTIONS (4)
  - NAUSEA [None]
  - URINARY RETENTION [None]
  - VOMITING [None]
  - OFF LABEL USE [None]
